FAERS Safety Report 4650159-6 (Version None)
Quarter: 2005Q2

REPORT INFORMATION
  Report Type: 
  Country: None (occurrence: None)
  Receive Date: 20050428
  Receipt Date: 20050418
  Transmission Date: 20051028
  Serious: Yes (Hospitalization)
  Sender: FDA-Public Use
  Company Number: 2005061741

PATIENT
  Age: 8 Year
  Sex: Female
  Weight: 21 kg

DRUGS (3)
  1. SOLU-MEDROL [Suspect]
     Indication: ILL-DEFINED DISORDER
     Dosage: 60 MG (1 IN 1 D), INTRAVENOUS
     Route: 042
     Dates: start: 20050205
  2. AMPHOTERICIN B [Suspect]
     Indication: PROPHYLAXIS
     Dosage: 60 MG (1 IN 1 D), INTRAVENOUS
     Route: 042
     Dates: start: 20050220
  3. GANCICLOVIR SODIUM [Concomitant]
     Indication: PROPHYLAXIS
     Dosage: 200 MG (500 MG, 1 IN 1 D), INTRAVENOUS

REACTIONS (1)
  - BRADYCARDIA [None]
